FAERS Safety Report 6740821-3 (Version None)
Quarter: 2010Q2

REPORT INFORMATION
  Report Type: 
  Country: None (occurrence: None)
  Receive Date: 20100525
  Receipt Date: 20100525
  Transmission Date: 20101027
  Serious: Yes (Other)
  Sender: FDA-Public Use
  Company Number: None

PATIENT
  Age: 31 Year
  Sex: Female
  Weight: 80.7403 kg

DRUGS (1)
  1. MEDROXYPROGESTERONE [Suspect]
     Indication: HYPERPLASIA
     Dosage: ONCE A DAY QID PO
     Route: 048
     Dates: start: 20100506, end: 20100518

REACTIONS (4)
  - ABDOMINAL PAIN [None]
  - DIZZINESS [None]
  - VAGINAL HAEMORRHAGE [None]
  - VOMITING [None]
